FAERS Safety Report 10507321 (Version 1)
Quarter: 2014Q4

REPORT INFORMATION
  Report Type: Spontaneous
  Country: US (occurrence: None)
  Receive Date: 20141008
  Receipt Date: 20141008
  Transmission Date: 20150528
  Serious: Yes (Disabling)
  Sender: FDA-Public Use
  Company Number: None

PATIENT
  Age: 34 Year
  Sex: Female
  Weight: 73.94 kg

DRUGS (2)
  1. LEVOXYL [Suspect]
     Active Substance: LEVOTHYROXINE SODIUM
     Indication: PAPILLARY THYROID CANCER
     Dosage: 1 PILL ONCE DAILY TAKEN BY MOUTH
     Route: 048
  2. LEVOXYL [Suspect]
     Active Substance: LEVOTHYROXINE SODIUM
     Indication: POST PROCEDURAL HYPOTHYROIDISM
     Dosage: 1 PILL ONCE DAILY TAKEN BY MOUTH
     Route: 048

REACTIONS (10)
  - Quality of life decreased [None]
  - Product formulation issue [None]
  - Depression [None]
  - Menstruation irregular [None]
  - Product quality issue [None]
  - Hypothyroidism [None]
  - Drug effect decreased [None]
  - Pruritus generalised [None]
  - Arthralgia [None]
  - Constipation [None]

NARRATIVE: CASE EVENT DATE: 20141006
